FAERS Safety Report 12519821 (Version 5)
Quarter: 2016Q4

REPORT INFORMATION
  Report Type: Report from Study
  Country: CA (occurrence: CA)
  Receive Date: 20160630
  Receipt Date: 20161019
  Transmission Date: 20170207
  Serious: Yes (Other)
  Sender: FDA-Public Use
  Company Number: CA-JNJFOC-20160622321

PATIENT
  Sex: Male

DRUGS (1)
  1. IMBRUVICA [Suspect]
     Active Substance: IBRUTINIB
     Indication: CHRONIC LYMPHOCYTIC LEUKAEMIA
     Route: 048
     Dates: start: 20160614

REACTIONS (7)
  - Muscle spasms [Recovering/Resolving]
  - Haemoglobin decreased [Recovered/Resolved]
  - Headache [Recovered/Resolved]
  - Asthenia [Not Recovered/Not Resolved]
  - Nasopharyngitis [Recovering/Resolving]
  - Drug dose omission [Recovered/Resolved]
  - Sinus disorder [Recovering/Resolving]

NARRATIVE: CASE EVENT DATE: 2016
